FAERS Safety Report 9173920 (Version 1)
Quarter: 2013Q1

REPORT INFORMATION
  Report Type: Spontaneous
  Country: US (occurrence: US)
  Receive Date: 20130320
  Receipt Date: 20130320
  Transmission Date: 20140127
  Serious: No
  Sender: FDA-Public Use
  Company Number: US-GALDERMA-US-GDP-12412963

PATIENT
  Age: 72 Year
  Sex: Male
  Weight: 109 kg

DRUGS (22)
  1. VECTICAL [Suspect]
     Indication: PSORIASIS
     Route: 061
     Dates: start: 20111210, end: 20120118
  2. LISINOPRIL [Concomitant]
     Indication: HYPERTENSION
     Route: 048
  3. HYDROCHLOROTHIAZIDE [Concomitant]
     Indication: HYPERTENSION
     Route: 048
  4. INSPRA [Concomitant]
     Indication: HYPERTENSION
     Route: 048
  5. TOPROL [Concomitant]
     Indication: HYPERTENSION
     Route: 048
  6. KLOR-CON [Concomitant]
     Indication: MINERAL SUPPLEMENTATION
     Route: 048
  7. GLIPIZIDE [Concomitant]
     Indication: TYPE 2 DIABETES MELLITUS
     Route: 048
  8. PLAVIX [Concomitant]
     Route: 048
  9. ASPIRIN [Concomitant]
     Route: 048
  10. SYNTHROID [Concomitant]
     Indication: HYPOTHYROIDISM
     Route: 048
  11. VYTORIN [Concomitant]
     Indication: BLOOD CHOLESTEROL INCREASED
     Route: 048
  12. ALLOPURINOL [Concomitant]
  13. TACLONEX [Concomitant]
  14. DESONIDE [Concomitant]
  15. CLOBETASOL [Concomitant]
  16. VITAMIN D [Concomitant]
  17. VITAMIN C [Concomitant]
  18. CALMAG [Concomitant]
  19. B 12 [Concomitant]
  20. WITHC HAZEL AFTER SHAVE [Concomitant]
  21. GILETTE FOAMY REGULAR [Concomitant]
  22. WITCH HAZEL AFTER SHAVE [Concomitant]
     Indication: THERAPEUTIC SKIN CARE TOPICAL

REACTIONS (5)
  - Pain of skin [Recovered/Resolved]
  - Dry skin [Recovered/Resolved]
  - Skin hypertrophy [Recovered/Resolved]
  - Erythema [Recovered/Resolved]
  - Pruritus [Recovered/Resolved]
